FAERS Safety Report 16261544 (Version 2)
Quarter: 2019Q2

REPORT INFORMATION
  Report Type: Report from Study
  Country: US (occurrence: US)
  Receive Date: 20190501
  Receipt Date: 20190603
  Transmission Date: 20190711
  Serious: No
  Sender: FDA-Public Use
  Company Number: US-SA-2019SA116001

PATIENT
  Age: 61 Year
  Sex: Female

DRUGS (10)
  1. COENZYME Q10 [Concomitant]
     Active Substance: UBIDECARENONE
  2. ZYRTEC [Concomitant]
     Active Substance: CETIRIZINE HYDROCHLORIDE
  3. SYNTHROID [Concomitant]
     Active Substance: LEVOTHYROXINE SODIUM
  4. ALIROCUMAB [Suspect]
     Active Substance: ALIROCUMAB
     Indication: PROPHYLAXIS
     Dosage: 150 MG, QOW
     Route: 058
     Dates: start: 20190412
  5. ALIROCUMAB [Suspect]
     Active Substance: ALIROCUMAB
     Indication: ARTERIOSCLEROSIS
  6. METFORMIN ER [Concomitant]
     Active Substance: METFORMIN HYDROCHLORIDE
  7. PLAVIX [Concomitant]
     Active Substance: CLOPIDOGREL BISULFATE
  8. AIMOVIG [Concomitant]
     Active Substance: ERENUMAB-AOOE
  9. PROPRANOLOL HYDROCHLORIDE. [Concomitant]
     Active Substance: PROPRANOLOL HYDROCHLORIDE
  10. ASPIRIN [ACETYLSALICYLIC ACID] [Concomitant]
     Active Substance: ASPIRIN

REACTIONS (6)
  - Nasal congestion [Unknown]
  - Feeling abnormal [Unknown]
  - Abdominal discomfort [Unknown]
  - Pain in extremity [Unknown]
  - Decreased appetite [Recovering/Resolving]
  - Cold sweat [Unknown]

NARRATIVE: CASE EVENT DATE: 2019
